FAERS Safety Report 12239276 (Version 1)
Quarter: 2016Q2

REPORT INFORMATION
  Report Type: Spontaneous
  Country: US (occurrence: US)
  Receive Date: 20160405
  Receipt Date: 20160405
  Transmission Date: 20160815
  Serious: Yes (Other)
  Sender: FDA-Public Use
  Company Number: US-MDT-ADR-2016-00631

PATIENT
  Age: 33 Year
  Sex: Male

DRUGS (1)
  1. COMPOUNDED BACLOFEN [Suspect]
     Active Substance: BACLOFEN
     Indication: MUSCLE SPASTICITY
     Dosage: 312 MCG/DAY
     Route: 037

REACTIONS (4)
  - Muscle twitching [Unknown]
  - No therapeutic response [Unknown]
  - Pruritus [Unknown]
  - Muscle spasms [Unknown]
